FAERS Safety Report 23919170 (Version 1)
Quarter: 2024Q2

REPORT INFORMATION
  Report Type: Spontaneous
  Country: AT (occurrence: AT)
  Receive Date: 20240530
  Receipt Date: 20240530
  Transmission Date: 20240715
  Serious: Yes (Other)
  Sender: FDA-Public Use
  Company Number: AT-002147023-NVSC2024AT112511

PATIENT
  Age: 44 Year
  Sex: Female

DRUGS (1)
  1. COSENTYX [Suspect]
     Active Substance: SECUKINUMAB
     Indication: Product used for unknown indication
     Dosage: UNK
     Route: 065

REACTIONS (12)
  - Angina pectoris [Unknown]
  - Anaphylactic shock [Unknown]
  - Abdominal pain upper [Unknown]
  - Cardiovascular disorder [Unknown]
  - Oropharyngeal discomfort [Unknown]
  - Ulcer [Unknown]
  - Pharyngeal swelling [Unknown]
  - Palpitations [Unknown]
  - Dyspnoea [Unknown]
  - Ear pain [Unknown]
  - Cold sweat [Unknown]
  - Swollen tongue [Unknown]
